FAERS Safety Report 9672453 (Version 1)
Quarter: 2013Q4

REPORT INFORMATION
  Report Type: Spontaneous
  Country: US (occurrence: US)
  Receive Date: 20131106
  Receipt Date: 20131106
  Transmission Date: 20140711
  Serious: Yes (Other)
  Sender: FDA-Public Use
  Company Number: US-PFIZER INC-2013314193

PATIENT
  Age: 35 Year
  Sex: Male
  Weight: 79.37 kg

DRUGS (4)
  1. EFFEXOR XR [Suspect]
     Indication: ANXIETY
     Dosage: 225 MG (BY TAKING THREE CAPSULES OF 75MG), 1X/DAY
     Route: 048
     Dates: start: 2008, end: 201310
  2. EFFEXOR XR [Suspect]
     Dosage: 150 MG (BY TAKING TWO CAPSULES OF 75MG), 1X/DAY
     Route: 048
     Dates: start: 201310, end: 201310
  3. EFFEXOR XR [Suspect]
     Dosage: 75 MG, 1X/DAY
     Route: 048
     Dates: start: 201310, end: 201310
  4. EFFEXOR XR [Suspect]
     Dosage: UNK, 1X/DAY
     Route: 048
     Dates: start: 201310, end: 201310

REACTIONS (3)
  - Loss of consciousness [Not Recovered/Not Resolved]
  - Drug dependence [Not Recovered/Not Resolved]
  - Drug withdrawal syndrome [Not Recovered/Not Resolved]
